FAERS Safety Report 17566446 (Version 1)
Quarter: 2020Q1

REPORT INFORMATION
  Report Type: Spontaneous
  Country: IR (occurrence: IR)
  Receive Date: 20200320
  Receipt Date: 20200320
  Transmission Date: 20200409
  Serious: Yes (Hospitalization)
  Sender: FDA-Public Use
  Company Number: IR-BAUSCH-BL-2020-007592

PATIENT
  Age: 23 Year
  Sex: Male

DRUGS (5)
  1. PREDNISOLON [Suspect]
     Active Substance: PREDNISOLONE
     Indication: OFF LABEL USE
  2. RITUXIMAB. [Suspect]
     Active Substance: RITUXIMAB
     Indication: GLOMERULONEPHRITIS PROLIFERATIVE
     Dosage: FOUR WEEKLY INFUSIONS (4 DOSES)
     Route: 065
  3. RITUXIMAB. [Suspect]
     Active Substance: RITUXIMAB
     Indication: GLOMERULONEPHRITIS
  4. PREDNISOLON [Suspect]
     Active Substance: PREDNISOLONE
     Indication: GLOMERULONEPHRITIS PROLIFERATIVE
     Route: 065
  5. PREDNISOLON [Suspect]
     Active Substance: PREDNISOLONE
     Indication: GLOMERULONEPHRITIS

REACTIONS (2)
  - Cerebral toxoplasmosis [Recovering/Resolving]
  - Off label use [Unknown]
